FAERS Safety Report 4480048-1 (Version None)
Quarter: 2004Q4

REPORT INFORMATION
  Report Type: 
  Country: None (occurrence: None)
  Receive Date: 20041018
  Receipt Date: 20040921
  Transmission Date: 20050328
  Serious: Yes (Other)
  Sender: FDA-Public Use
  Company Number: USA040773453

PATIENT
  Age: 84 Year
  Sex: Female
  Weight: 49 kg

DRUGS (12)
  1. FORTEO [Suspect]
     Indication: OSTEOPOROSIS
     Dosage: 20 UG DAY
     Dates: start: 20040301
  2. HYDREA [Concomitant]
  3. TOPROL-XL [Concomitant]
  4. LEVOXYL [Concomitant]
  5. KLOR-CON [Concomitant]
  6. FUROSEMIDE [Concomitant]
  7. PLENDIL [Concomitant]
  8. CALTRATE 600 PLUS VITAMIN D [Concomitant]
  9. XANAX (ALPRAZOLAM DUM) [Concomitant]
  10. CITRUCEL (METHYLCELLULOSE) [Concomitant]
  11. COLACE (DOCUSATE SODIUM) [Concomitant]
  12. PRILOSEC [Concomitant]

REACTIONS (10)
  - ABDOMINAL DISTENSION [None]
  - ANAEMIA [None]
  - CONDITION AGGRAVATED [None]
  - FATIGUE [None]
  - PROTEIN URINE PRESENT [None]
  - RED BLOOD CELL COUNT DECREASED [None]
  - RENAL FAILURE [None]
  - THROMBOCYTHAEMIA [None]
  - WEIGHT DECREASED [None]
  - WHITE BLOOD CELL COUNT DECREASED [None]
